FAERS Safety Report 13278903 (Version 4)
Quarter: 2020Q2

REPORT INFORMATION
  Report Type: Spontaneous
  Country: GB (occurrence: GB)
  Receive Date: 20170228
  Receipt Date: 20200616
  Transmission Date: 20200713
  Serious: Yes (Other)
  Sender: FDA-Public Use
  Company Number: GB-MYLANLABS-2017M1012427

PATIENT
  Age: 43 Year
  Sex: Male

DRUGS (1)
  1. CLOZARIL [Suspect]
     Active Substance: CLOZAPINE
     Indication: PRODUCT USED FOR UNKNOWN INDICATION
     Dosage: UNK
     Route: 048
     Dates: start: 20170222

REACTIONS (1)
  - Differential white blood cell count abnormal [Not Recovered/Not Resolved]

NARRATIVE: CASE EVENT DATE: 20170223
